FAERS Safety Report 6003664-4 (Version None)
Quarter: 2008Q4

REPORT INFORMATION
  Report Type: 
  Country: None (occurrence: None)
  Receive Date: 20081216
  Receipt Date: 20080620
  Transmission Date: 20090506
  Serious: No
  Sender: FDA-Public Use
  Company Number: US-AMGEN-KDL288632

PATIENT
  Sex: Female

DRUGS (12)
  1. ARANESP [Suspect]
     Indication: RENAL FAILURE CHRONIC
     Dates: start: 20080619
  2. PLAVIX [Concomitant]
  3. AMLODIPINE [Concomitant]
  4. CALCITRIOL [Concomitant]
  5. LORATADINE [Concomitant]
  6. METOPROLOL [Concomitant]
  7. FUROSEMIDE [Concomitant]
  8. OMEPRAZOLE [Concomitant]
  9. HYDRALAZINE HCL [Concomitant]
  10. LISINOPRIL [Concomitant]
  11. ISOSORBIDE MONONITRADE [Concomitant]
  12. ZOCOR [Concomitant]

REACTIONS (1)
  - DIPLOPIA [None]
